FAERS Safety Report 7551705-5 (Version None)
Quarter: 2011Q2

REPORT INFORMATION
  Report Type: 
  Country: None (occurrence: None)
  Receive Date: 20110616
  Receipt Date: 20110601
  Transmission Date: 20111010
  Serious: Yes (Hospitalization)
  Sender: FDA-Public Use
  Company Number: A0658263A

PATIENT
  Sex: Female
  Weight: 58.6 kg

DRUGS (16)
  1. DIOVAN [Concomitant]
  2. ZETIA [Concomitant]
  3. COQ10 [Concomitant]
  4. UNSPECIFIED MEDICATION [Concomitant]
  5. PREVACID [Concomitant]
  6. AVANDIA [Suspect]
     Indication: TYPE 2 DIABETES MELLITUS
     Dosage: 4MG PER DAY
     Route: 048
     Dates: start: 20030913, end: 20070824
  7. MAGNESIUM SULFATE [Concomitant]
  8. FOSAMAX [Concomitant]
  9. CALCITRATE [Concomitant]
  10. MULTIVITAMIN [Concomitant]
  11. DIOVAN [Concomitant]
  12. PRAVACHOL [Concomitant]
     Dates: start: 20040701
  13. ASPIRIN [Concomitant]
  14. TOPROL-XL [Concomitant]
  15. VYTORIN [Concomitant]
  16. VERELAN [Concomitant]

REACTIONS (2)
  - ACUTE CORONARY SYNDROME [None]
  - MYOCARDIAL INFARCTION [None]
